FAERS Safety Report 4968840-8 (Version None)
Quarter: 2006Q2

REPORT INFORMATION
  Report Type: 
  Country: None (occurrence: None)
  Receive Date: 20060405
  Receipt Date: 20060325
  Transmission Date: 20061013
  Serious: Yes (Hospitalization, Other)
  Sender: FDA-Public Use
  Company Number: 2005163190

PATIENT
  Age: 11 Year
  Sex: Female

DRUGS (7)
  1. NORVASC [Suspect]
     Indication: HYPERTENSION
     Dosage: SEE IMAGE
     Dates: start: 20050901, end: 20051101
  2. NORVASC [Suspect]
     Indication: HYPERTENSION
     Dosage: SEE IMAGE
     Dates: start: 20040301, end: 20051122
  3. NORVASC [Suspect]
     Indication: HYPERTENSION
     Dosage: SEE IMAGE
     Dates: start: 20051101, end: 20051122
  4. PROTEASE INHIBITORS (PROTEASE INHIBITORS) [Suspect]
     Indication: ILL-DEFINED DISORDER
  5. ATAZANAVIR [Concomitant]
  6. SAQUINAVIR [Concomitant]
  7. ENFUVIRTIDE [Concomitant]

REACTIONS (17)
  - BLOOD PRESSURE INADEQUATELY CONTROLLED [None]
  - CONVULSION [None]
  - DEMYELINATION [None]
  - DRUG TOXICITY [None]
  - ENCEPHALITIS [None]
  - FACE OEDEMA [None]
  - GRAND MAL CONVULSION [None]
  - HAEMODIALYSIS [None]
  - HEADACHE [None]
  - HYPERTENSIVE ENCEPHALOPATHY [None]
  - LEUKOENCEPHALOPATHY [None]
  - LOCALISED OEDEMA [None]
  - MALIGNANT HYPERTENSION [None]
  - OEDEMA [None]
  - OEDEMA PERIPHERAL [None]
  - PAIN [None]
  - RENAL IMPAIRMENT [None]
